FAERS Safety Report 23777963 (Version 1)
Quarter: 2024Q2

REPORT INFORMATION
  Report Type: Report from Study
  Country: KR (occurrence: KR)
  Receive Date: 20240424
  Receipt Date: 20240424
  Transmission Date: 20240715
  Serious: Yes (Hospitalization)
  Sender: FDA-Public Use
  Company Number: KR-VIVUS LLC-2024V1000443

PATIENT
  Age: 23 Year
  Sex: Female

DRUGS (8)
  1. QSYMIA [Suspect]
     Active Substance: PHENTERMINE HYDROCHLORIDE\TOPIRAMATE
     Indication: Obesity
     Route: 048
  2. Oral Farlutal [Concomitant]
     Indication: Product used for unknown indication
     Route: 048
     Dates: start: 20221012, end: 20221012
  3. Oral Aspirin protect [Concomitant]
     Indication: Product used for unknown indication
     Route: 048
     Dates: start: 20221012, end: 20221012
  4. Oral Anaprox [Concomitant]
     Indication: Product used for unknown indication
     Route: 048
     Dates: start: 20230112, end: 20230112
  5. Oral Camex [Concomitant]
     Indication: Product used for unknown indication
     Route: 048
     Dates: start: 20230112, end: 20230112
  6. Oral Medilac-DS [Concomitant]
     Indication: Product used for unknown indication
     Route: 048
     Dates: start: 20230112, end: 20230112
  7. Oral Lesomezole [Concomitant]
     Indication: Product used for unknown indication
     Route: 048
     Dates: start: 20230112, end: 20230112
  8. Subcutaneous Zoladex [Concomitant]
     Indication: Product used for unknown indication
     Route: 048
     Dates: start: 20221012, end: 20221012

REACTIONS (1)
  - Hysteroscopy [Recovered/Resolved]

NARRATIVE: CASE EVENT DATE: 20230111
